FAERS Safety Report 7945662-7 (Version None)
Quarter: 2011Q4

REPORT INFORMATION
  Report Type: 
  Country: None (occurrence: None)
  Receive Date: 20111129
  Receipt Date: 20111121
  Transmission Date: 20120403
  Serious: Yes (Death, Hospitalization)
  Sender: FDA-Public Use
  Company Number: US-CELGENEUS-163-21880-11103237

PATIENT
  Sex: Female
  Weight: 45.854 kg

DRUGS (6)
  1. DEXAMETHASONE [Concomitant]
     Dosage: 4 MILLIGRAM
     Route: 065
  2. FENTANYL [Concomitant]
     Dosage: 25 MICROGRAM
     Route: 065
  3. FLEXERIL [Concomitant]
     Dosage: 10 MILLIGRAM
     Route: 065
  4. REVLIMID [Suspect]
     Indication: MULTIPLE MYELOMA
     Dosage: 25 MILLIGRAM
     Route: 048
     Dates: start: 20110826, end: 20111101
  5. LORTAB [Concomitant]
     Dosage: 5/500 MG
     Route: 065
  6. XANAX [Concomitant]
     Dosage: .5 MILLIGRAM
     Route: 065

REACTIONS (4)
  - URINARY TRACT INFECTION [None]
  - DEATH [None]
  - CANDIDIASIS [None]
  - CONFUSIONAL STATE [None]
